FAERS Safety Report 8997195 (Version 4)
Quarter: 2013Q2

REPORT INFORMATION
  Report Type: Spontaneous
  Country: IL (occurrence: IL)
  Receive Date: 20130104
  Receipt Date: 20130405
  Transmission Date: 20140414
  Serious: Yes (Hospitalization, Other)
  Sender: FDA-Public Use
  Company Number: IL-GLAXOSMITHKLINE-B0855646A

PATIENT
  Age: 40 Year
  Sex: Female
  Weight: 100 kg

DRUGS (7)
  1. BENLYSTA [Suspect]
     Indication: SYSTEMIC LUPUS ERYTHEMATOSUS
     Dosage: 1000MG PER DAY
     Route: 042
  2. PLAQUENIL [Concomitant]
  3. PREDNISONE [Concomitant]
  4. CELLCEPT [Concomitant]
  5. CLONEX [Concomitant]
  6. COUMADIN [Concomitant]
  7. UNKNOWN DRUG [Concomitant]

REACTIONS (3)
  - Convulsion [Unknown]
  - Status epilepticus [Unknown]
  - Uterine dilation and curettage [Unknown]
